FAERS Safety Report 6158065-5 (Version None)
Quarter: 2009Q2

REPORT INFORMATION
  Report Type: 
  Country: None (occurrence: None)
  Receive Date: 20090417
  Receipt Date: 20090407
  Transmission Date: 20091009
  Serious: Yes (Other)
  Sender: FDA-Public Use
  Company Number: US-PFIZER INC-2009195523

PATIENT
  Sex: Female
  Weight: 79.365 kg

DRUGS (8)
  1. CELEBREX [Suspect]
     Dosage: UNK
     Dates: start: 20080101, end: 20090301
  2. LYRICA [Suspect]
     Indication: JOINT SWELLING
     Dosage: UNK
     Dates: start: 20081101, end: 20090301
  3. LYRICA [Suspect]
     Indication: INTERVERTEBRAL DISC PROTRUSION
  4. ZANTAC [Concomitant]
     Indication: GASTROOESOPHAGEAL REFLUX DISEASE
  5. LISINOPRIL [Concomitant]
     Indication: HYPERTENSION
  6. ATENOLOL [Concomitant]
     Indication: HYPERTENSION
  7. HYDROCODONE BITARTRATE [Concomitant]
     Indication: PAIN
  8. CRESTOR [Concomitant]
     Indication: BLOOD CHOLESTEROL INCREASED

REACTIONS (4)
  - HAEMORRHAGE [None]
  - PAIN [None]
  - PRURITUS [None]
  - RASH [None]
